FAERS Safety Report 8247607-1 (Version None)
Quarter: 2012Q1

REPORT INFORMATION
  Report Type: 
  Country: None (occurrence: None)
  Receive Date: 20120330
  Receipt Date: 20120322
  Transmission Date: 20120608
  Serious: Yes (Other)
  Sender: FDA-Public Use
  Company Number: US-BAYER-2010-007907

PATIENT
  Age: 24 Year
  Sex: Female
  Weight: 78.912 kg

DRUGS (3)
  1. YAZ [Suspect]
     Indication: ACNE
  2. ADDERALL 5 [Concomitant]
  3. YASMIN [Suspect]

REACTIONS (5)
  - GALLBLADDER NON-FUNCTIONING [None]
  - ABDOMINAL PAIN [None]
  - CHOLECYSTITIS CHRONIC [None]
  - PAIN [None]
  - INJURY [None]
